FAERS Safety Report 12483968 (Version 1)
Quarter: 2016Q2

REPORT INFORMATION
  Report Type: Report from Study
  Country: JP (occurrence: JP)
  Receive Date: 20160621
  Receipt Date: 20160621
  Transmission Date: 20160815
  Serious: Yes (Hospitalization)
  Sender: FDA-Public Use
  Company Number: PHHO2012JP016347

PATIENT
  Age: 57 Year
  Sex: Male
  Weight: 61 kg

DRUGS (17)
  1. NOVOLIN 30R [Concomitant]
     Active Substance: INSULIN HUMAN
     Dosage: 24 U, QD
     Route: 058
     Dates: start: 20110528
  2. PREDONINE [Concomitant]
     Active Substance: PREDNISOLONE\PREDNISOLONE ACETATE\PREDNISOLONE SODIUM SUCCINATE
     Indication: RHEUMATOID ARTHRITIS
     Dosage: 5 MG, UNK
     Route: 048
     Dates: start: 20070828
  3. CELECOX [Concomitant]
     Active Substance: CELECOXIB
     Indication: RHEUMATOID ARTHRITIS
     Dosage: 200 MG, UNK
     Route: 048
     Dates: start: 20080408
  4. BAKTAR [Concomitant]
     Active Substance: SULFAMETHOXAZOLE\TRIMETHOPRIM
     Indication: PROPHYLAXIS
     Dosage: 8 G, UNK
     Route: 048
     Dates: start: 20081118
  5. MYSLEE [Concomitant]
     Active Substance: ZOLPIDEM TARTRATE
     Indication: INSOMNIA
     Dosage: 5 MG, UNK
     Route: 048
     Dates: start: 20090609
  6. LENDORMIN DAINIPPO [Concomitant]
     Active Substance: BROTIZOLAM
     Indication: INSOMNIA
     Dosage: 0.25 MG, UNK
     Route: 048
     Dates: start: 20091218
  7. NOVOLIN 30R [Concomitant]
     Active Substance: INSULIN HUMAN
     Dosage: 12 U, IN THE MORNING
     Route: 058
     Dates: start: 20121110
  8. NOVOLIN 30R [Concomitant]
     Active Substance: INSULIN HUMAN
     Dosage: 18 U, QD, 6 UNITS MORNING, 6 UNITS NOON, 6 UNITS EVENING
     Route: 058
     Dates: start: 20121112
  9. RHEUMATREX [Concomitant]
     Active Substance: METHOTREXATE SODIUM
     Indication: RHEUMATOID ARTHRITIS
     Dosage: 2 MG, UNK
     Route: 048
     Dates: start: 20120529
  10. RHEUMATREX [Concomitant]
     Active Substance: METHOTREXATE SODIUM
     Indication: TYPE 2 DIABETES MELLITUS
     Dosage: 4 MG, UNK
     Route: 048
  11. KINEDAK [Concomitant]
     Active Substance: EPALRESTAT
     Indication: DIABETES MELLITUS
     Dosage: 150 MG, UNK
     Route: 048
     Dates: start: 20090526
  12. TAKEPRON [Concomitant]
     Active Substance: LANSOPRAZOLE
     Indication: GASTRITIS PROPHYLAXIS
     Dosage: 30 MG, UNK
     Route: 048
     Dates: start: 20070828
  13. LEVEMIR [Concomitant]
     Active Substance: INSULIN DETEMIR
     Indication: TYPE 2 DIABETES MELLITUS
     Dosage: 4 IU, UNK
     Route: 058
     Dates: start: 20121112
  14. NOVOLIN 30R [Concomitant]
     Active Substance: INSULIN HUMAN
     Dosage: 10 U, QD, (FROM EVENING)
     Route: 058
     Dates: start: 20121110, end: 20121112
  15. FOLIAMIN [Concomitant]
     Active Substance: FOLIC ACID
     Indication: PROPHYLAXIS
     Dosage: 5 MG, UNK
     Route: 048
     Dates: start: 20120918
  16. AIN457 [Suspect]
     Active Substance: SECUKINUMAB
     Indication: RHEUMATOID ARTHRITIS
     Dosage: 75 MG, (EVERY 4 WEEKS)
     Route: 058
     Dates: start: 20121009, end: 20140107
  17. NOVOLIN 30R [Concomitant]
     Active Substance: INSULIN HUMAN
     Indication: TYPE 2 DIABETES MELLITUS
     Dosage: 26 U, QD
     Route: 058
     Dates: start: 20110528

REACTIONS (2)
  - Occult blood positive [Recovered/Resolved]
  - Hypoglycaemia [Recovered/Resolved]

NARRATIVE: CASE EVENT DATE: 20121109
